FAERS Safety Report 4591778-5 (Version None)
Quarter: 2005Q1

REPORT INFORMATION
  Report Type: 
  Country: None (occurrence: None)
  Receive Date: 20050218
  Receipt Date: 20050208
  Transmission Date: 20050727
  Serious: Yes (Other)
  Sender: FDA-Public Use
  Company Number: 2005027026

PATIENT
  Sex: Female

DRUGS (2)
  1. BENADRYL [Suspect]
     Indication: DRUG HYPERSENSITIVITY
     Dosage: ORAL
     Route: 048
     Dates: start: 20050120
  2. ANTIBIOTICS (ANTIBIOTICS) [Suspect]
     Dates: start: 20050120

REACTIONS (2)
  - ANAPHYLACTIC SHOCK [None]
  - LOSS OF CONSCIOUSNESS [None]
